FAERS Safety Report 9720084 (Version 2)
Quarter: 2013Q4

REPORT INFORMATION
  Report Type: Spontaneous
  Country: US (occurrence: US)
  Receive Date: 20131128
  Receipt Date: 20131128
  Transmission Date: 20140711
  Serious: Yes (Death, Disabling)
  Sender: FDA-Public Use
  Company Number: US-GE HEALTHCARE MEDICAL DIAGNOSTICS-OSCN-PR-0805S-0294

PATIENT
  Age: 51 Year
  Sex: Male
  Weight: 81.63 kg

DRUGS (26)
  1. OMNISCAN [Suspect]
     Indication: TRANSPLANT EVALUATION
     Dates: start: 20010628, end: 20010628
  2. OMNISCAN [Suspect]
     Indication: CONGENITAL CYSTIC KIDNEY DISEASE
     Dates: start: 20020723, end: 20020723
  3. OMNISCAN [Suspect]
     Indication: RENAL FAILURE CHRONIC
  4. OMNISCAN [Suspect]
     Indication: MASS
  5. MAGNEVIST [Suspect]
     Indication: TRANSPLANT EVALUATION
     Dates: start: 20010228, end: 20010228
  6. MAGNEVIST [Suspect]
     Indication: AORTIC DISSECTION
     Dates: start: 20020604, end: 20020604
  7. MAGNEVIST [Suspect]
     Indication: CONVULSION
     Dates: start: 20021030, end: 20021030
  8. MAGNEVIST [Suspect]
     Indication: AORTIC DISSECTION
     Dates: start: 20021104, end: 20021104
  9. MAGNEVIST [Suspect]
     Indication: AORTIC ANEURYSM
  10. EPOGEN [Concomitant]
  11. NEPHROVITE [Concomitant]
  12. REFLUDAN [Concomitant]
  13. COUMADIN [Concomitant]
  14. ZESTRIL [Concomitant]
  15. NORVASC [Concomitant]
  16. ATENOLOL [Concomitant]
  17. LOPRESSOR [Concomitant]
  18. LASIX [Concomitant]
  19. IRON [Concomitant]
  20. DEPAKOTE [Concomitant]
  21. AMIODARONE [Concomitant]
  22. ZOLOFT [Concomitant]
  23. DILANTIN [Concomitant]
  24. COLCHICINE [Concomitant]
  25. PROVENTIL [Concomitant]
  26. ALLOPURINOL [Concomitant]

REACTIONS (1)
  - Nephrogenic systemic fibrosis [Fatal]
